FAERS Safety Report 25537647 (Version 1)
Quarter: 2025Q3

REPORT INFORMATION
  Report Type: Spontaneous
  Country: US (occurrence: US)
  Receive Date: 20250710
  Receipt Date: 20250710
  Transmission Date: 20251020
  Serious: Yes (Hospitalization)
  Sender: Unknown Manufacturer
  Company Number: US-KINIKSA PHARMACEUTICALS LTD.-2025KPU001799

PATIENT
  Sex: Female

DRUGS (2)
  1. ARCALYST [Suspect]
     Active Substance: RILONACEPT
     Indication: Pericarditis
     Dosage: 2 MILLILITER, QW
     Route: 058
     Dates: start: 202406
  2. ADDERALL [Concomitant]
     Active Substance: AMPHETAMINE ASPARTATE\AMPHETAMINE SULFATE\DEXTROAMPHETAMINE SACCHARATE\DEXTROAMPHETAMINE SULFATE
     Indication: Product used for unknown indication

REACTIONS (7)
  - Discomfort [Recovered/Resolved]
  - Product solubility abnormal [Not Recovered/Not Resolved]
  - Incorrect dose administered [Unknown]
  - Inappropriate schedule of product administration [Unknown]
  - Drug effect less than expected [Not Recovered/Not Resolved]
  - Chest discomfort [Unknown]
  - Chest pain [Unknown]

NARRATIVE: CASE EVENT DATE: 20250101
